FAERS Safety Report 6389521-2 (Version None)
Quarter: 2009Q4

REPORT INFORMATION
  Report Type: 
  Country: None (occurrence: None)
  Receive Date: 20091006
  Receipt Date: 20091005
  Transmission Date: 20100525
  Serious: Yes (Hospitalization)
  Sender: FDA-Public Use
  Company Number: US-ROXANE LABORATORIES, INC.-2009-RO-01028RO

PATIENT
  Age: 39 Year
  Sex: Female

DRUGS (8)
  1. LITHIUM CARBONATE [Suspect]
     Indication: BIPOLAR DISORDER
     Dates: start: 20090629, end: 20090704
  2. TRILEPTAL [Suspect]
     Dates: end: 20090704
  3. ASATEX [Concomitant]
     Dosage: 20 MG
  4. ZANTAC [Concomitant]
     Dosage: 300 MG
  5. CLARITIN [Concomitant]
     Indication: MULTIPLE ALLERGIES
  6. RHINOCORT [Concomitant]
     Indication: MULTIPLE ALLERGIES
  7. LISINOPRIL [Concomitant]
     Indication: HYPERTENSION
     Dosage: 20 MG
  8. TRAZODONE [Concomitant]
     Indication: HYPERTENSION

REACTIONS (4)
  - CONVULSION [None]
  - DRUG INTERACTION [None]
  - HYPONATRAEMIA [None]
  - TETANY [None]
